FAERS Safety Report 8421750-6 (Version None)
Quarter: 2012Q2

REPORT INFORMATION
  Report Type: 
  Country: None (occurrence: None)
  Receive Date: 20120608
  Receipt Date: 20120604
  Transmission Date: 20120825
  Serious: Yes (Other)
  Sender: FDA-Public Use
  Company Number: AU-BRISTOL-MYERS SQUIBB COMPANY-16659773

PATIENT
  Age: 63 Year
  Sex: Female
  Weight: 65 kg

DRUGS (6)
  1. ACETAMINOPHEN [Concomitant]
  2. FOLIC ACID [Concomitant]
  3. ORENCIA [Suspect]
     Route: 042
  4. LEUCOVORIN CALCIUM [Concomitant]
  5. METHOTREXATE [Concomitant]
  6. PREDNISONE TAB [Concomitant]

REACTIONS (1)
  - CARPAL TUNNEL SYNDROME [None]
